FAERS Safety Report 24352184 (Version 1)
Quarter: 2024Q3

REPORT INFORMATION
  Report Type: Report from Study
  Country: CA (occurrence: CA)
  Receive Date: 20240923
  Receipt Date: 20240923
  Transmission Date: 20241017
  Serious: No
  Sender: ROCHE
  Company Number: CA-ROCHE-3335393

PATIENT
  Age: 41 Year
  Sex: Female
  Weight: 80.0 kg

DRUGS (5)
  1. HERCEPTIN [Suspect]
     Active Substance: TRASTUZUMAB
     Indication: Breast cancer
     Dosage: RECEIVED OUTSIDE RPAP, DETAILS NOT KNOWN
     Route: 065
  2. PERJETA [Suspect]
     Active Substance: PERTUZUMAB
     Indication: HER2 positive breast cancer
     Route: 042
     Dates: start: 20230330, end: 20230330
  3. PERJETA [Suspect]
     Active Substance: PERTUZUMAB
     Dosage: PREVIOUS INFUSION: 11/OCT/2023
     Route: 042
     Dates: start: 20230419
  4. PERJETA [Suspect]
     Active Substance: PERTUZUMAB
     Route: 042
  5. PERJETA [Suspect]
     Active Substance: PERTUZUMAB
     Route: 042

REACTIONS (3)
  - Heart rate decreased [Unknown]
  - Blood pressure systolic increased [Unknown]
  - Blood pressure systolic abnormal [Unknown]

NARRATIVE: CASE EVENT DATE: 20230419
